FAERS Safety Report 24626606 (Version 1)
Quarter: 2024Q4

REPORT INFORMATION
  Report Type: Spontaneous
  Country: US (occurrence: US)
  Receive Date: 20241115
  Receipt Date: 20241115
  Transmission Date: 20250115
  Serious: No
  Sender: SANOFI AVENTIS
  Company Number: US-SA-2024SA331465

PATIENT
  Age: 75 Year
  Sex: Male

DRUGS (46)
  1. DUPIXENT [Suspect]
     Active Substance: DUPILUMAB
     Indication: Dermatitis atopic
     Dosage: 300 MG
     Route: 058
     Dates: start: 20240212
  2. INCRUSE ELLIPTA [Concomitant]
     Active Substance: UMECLIDINIUM BROMIDE
  3. ADALIMUMAB [Concomitant]
     Active Substance: ADALIMUMAB
  4. METROGEL V [Concomitant]
  5. FLUCONAZOLE [Concomitant]
     Active Substance: FLUCONAZOLE
  6. ZINC [Concomitant]
     Active Substance: ZINC
  7. AJOVY [Concomitant]
     Active Substance: FREMANEZUMAB-VFRM
  8. QVAR [Concomitant]
     Active Substance: BECLOMETHASONE DIPROPIONATE
  9. TAMSULOSIN [Concomitant]
     Active Substance: TAMSULOSIN
  10. NYSTATIN [Concomitant]
     Active Substance: NYSTATIN
  11. AMOXICILLIN\CLAVULANATE POTASSIUM [Concomitant]
     Active Substance: AMOXICILLIN\CLAVULANATE POTASSIUM
  12. LACTOSE FAST ACTING RELIEF [Concomitant]
  13. NUVIGIL [Concomitant]
     Active Substance: ARMODAFINIL
  14. TIOTROPIUM BROMIDE [Concomitant]
     Active Substance: TIOTROPIUM BROMIDE
  15. XIFAXAN [Concomitant]
     Active Substance: RIFAXIMIN
  16. DICLOFENAC [Concomitant]
     Active Substance: DICLOFENAC
  17. PREVIDENT [Concomitant]
     Active Substance: SODIUM FLUORIDE
  18. RECLAST [Concomitant]
     Active Substance: ZOLEDRONIC ACID
  19. REMICADE [Concomitant]
     Active Substance: INFLIXIMAB
  20. FLONASE ALLERGY RELIEF [Concomitant]
     Active Substance: FLUTICASONE PROPIONATE
  21. FAMOTIDINE [Concomitant]
     Active Substance: FAMOTIDINE
  22. MOVANTIK [Concomitant]
     Active Substance: NALOXEGOL OXALATE
  23. FUROSEMIDE [Concomitant]
     Active Substance: FUROSEMIDE
  24. COSENTYX [Concomitant]
     Active Substance: SECUKINUMAB
  25. XIIDRA [Concomitant]
     Active Substance: LIFITEGRAST
  26. PREDNISONE ACETATE [Concomitant]
     Active Substance: PREDNISONE ACETATE
  27. SUMATRIPTAN [Concomitant]
     Active Substance: SUMATRIPTAN
  28. AZELASTINE [Concomitant]
     Active Substance: AZELASTINE
  29. SYMBICORT [Concomitant]
     Active Substance: BUDESONIDE\FORMOTEROL FUMARATE DIHYDRATE
  30. ANDROGEL [Concomitant]
     Active Substance: TESTOSTERONE
  31. ONDANSETRON [Concomitant]
     Active Substance: ONDANSETRON
  32. ORENCIA [Concomitant]
     Active Substance: ABATACEPT
  33. AIMOVIG [Concomitant]
     Active Substance: ERENUMAB-AOOE
  34. TOPIRAMATE [Concomitant]
     Active Substance: TOPIRAMATE
  35. VALACYCLOVIR HYDROCHLORIDE [Concomitant]
     Active Substance: VALACYCLOVIR HYDROCHLORIDE
  36. ASCORBIC ACID [Concomitant]
     Active Substance: ASCORBIC ACID
  37. TETRACYCLINE [Concomitant]
     Active Substance: TETRACYCLINE
  38. MORPHINE [Concomitant]
     Active Substance: MORPHINE
  39. NYSTATIN [Concomitant]
     Active Substance: NYSTATIN
  40. SUCRALFATE [Concomitant]
     Active Substance: SUCRALFATE
  41. VITAMIN D3 [Concomitant]
     Active Substance: CHOLECALCIFEROL
  42. OTEZLA [Concomitant]
     Active Substance: APREMILAST
  43. OXYCODONE [Concomitant]
     Active Substance: OXYCODONE
  44. ACETAMINOPHEN [Concomitant]
     Active Substance: ACETAMINOPHEN
  45. MUPIROCIN [Concomitant]
     Active Substance: MUPIROCIN
  46. CLINDAMYCIN [Concomitant]
     Active Substance: CLINDAMYCIN

REACTIONS (1)
  - Pruritus [Not Recovered/Not Resolved]

NARRATIVE: CASE EVENT DATE: 20241106
